FAERS Safety Report 5704611-2 (Version None)
Quarter: 2008Q2

REPORT INFORMATION
  Report Type: 
  Country: None (occurrence: None)
  Receive Date: 20080414
  Receipt Date: 20080408
  Transmission Date: 20081010
  Serious: Yes (Hospitalization)
  Sender: FDA-Public Use
  Company Number: FR-WYE-G01370308

PATIENT
  Sex: Male

DRUGS (7)
  1. TAZOCILLINE [Suspect]
     Route: 042
     Dates: start: 20080224, end: 20080313
  2. TAZOCILLINE [Suspect]
     Route: 042
     Dates: start: 20080314, end: 20080318
  3. DAFALGAN [Concomitant]
     Dosage: PRN
  4. TOPALGIC [Concomitant]
     Dosage: UNKNOWN
  5. ELISOR [Concomitant]
     Dosage: UNKNOWN
  6. CIFLOX [Suspect]
     Route: 048
     Dates: start: 20080224, end: 20080318
  7. COUMADIN [Concomitant]
     Dosage: UNKNOWN

REACTIONS (2)
  - AGRANULOCYTOSIS [None]
  - GRANULOCYTES MATURATION ARREST [None]
